FAERS Safety Report 25984683 (Version 1)
Quarter: 2025Q4

REPORT INFORMATION
  Report Type: Report from Study
  Country: US (occurrence: US)
  Receive Date: 20251031
  Receipt Date: 20251031
  Transmission Date: 20260118
  Serious: Yes (Hospitalization)
  Sender: BIOCODEX
  Company Number: US-BIOCODEX2-2025001664

PATIENT
  Sex: Male
  Weight: 35.6 kg

DRUGS (5)
  1. DIACOMIT [Suspect]
     Active Substance: STIRIPENTOL
     Indication: Partial seizures
     Dosage: TAKE 375 MG BY MOUTH THREE TIMES DAILY
     Route: 048
     Dates: start: 20220809
  2. CLOBAZAM [Concomitant]
     Active Substance: CLOBAZAM
     Indication: Product used for unknown indication
     Route: 065
  3. ZONISAMIDE [Concomitant]
     Active Substance: ZONISAMIDE
     Indication: Product used for unknown indication
     Route: 065
  4. IRON [Concomitant]
     Active Substance: IRON
     Indication: Product used for unknown indication
     Route: 065
  5. NAYZILAM nasal solution [Concomitant]
     Indication: Product used for unknown indication
     Route: 065

REACTIONS (2)
  - Off label use [Unknown]
  - Neurosurgery [Recovering/Resolving]

NARRATIVE: CASE EVENT DATE: 20220809
